FAERS Safety Report 6366478-1 (Version None)
Quarter: 2009Q3

REPORT INFORMATION
  Report Type: 
  Country: None (occurrence: None)
  Receive Date: 20090921
  Receipt Date: 20090909
  Transmission Date: 20100115
  Serious: Yes (Other)
  Sender: FDA-Public Use
  Company Number: IN-ROCHE-656681

PATIENT

DRUGS (1)
  1. TAMIFLU [Suspect]
     Route: 064
     Dates: start: 20090902

REACTIONS (1)
  - STILLBIRTH [None]
